FAERS Safety Report 12024297 (Version 1)
Quarter: 2016Q1

REPORT INFORMATION
  Report Type: Report from Study
  Country: US (occurrence: US)
  Receive Date: 20160206
  Receipt Date: 20160206
  Transmission Date: 20160526
  Serious: No
  Sender: FDA-Public Use
  Company Number: US-ABBVIE-15K-163-1476598-00

PATIENT
  Age: 48 Year
  Sex: Female
  Weight: 40.86 kg

DRUGS (4)
  1. PROTONIX [Concomitant]
     Active Substance: PANTOPRAZOLE SODIUM
     Indication: PRODUCT USED FOR UNKNOWN INDICATION
  2. PREDNISONE. [Concomitant]
     Active Substance: PREDNISONE
     Indication: PRODUCT USED FOR UNKNOWN INDICATION
  3. HUMIRA [Suspect]
     Active Substance: ADALIMUMAB
     Indication: RHEUMATOID ARTHRITIS
     Route: 058
     Dates: start: 201506, end: 201508
  4. ZYRTEC [Concomitant]
     Active Substance: CETIRIZINE HYDROCHLORIDE
     Indication: SEASONAL ALLERGY

REACTIONS (12)
  - Sinus congestion [Recovered/Resolved]
  - Eye swelling [Recovered/Resolved]
  - Nasal oedema [Recovered/Resolved]
  - Respiratory tract congestion [Recovered/Resolved]
  - Mood altered [Recovered/Resolved]
  - Swollen tongue [Recovered/Resolved]
  - Feeling abnormal [Recovered/Resolved]
  - Depression [Recovered/Resolved]
  - Paranoia [Recovered/Resolved]
  - Sinus disorder [Recovered/Resolved]
  - Swelling face [Recovered/Resolved]
  - Urticaria [Recovered/Resolved]

NARRATIVE: CASE EVENT DATE: 201506
